FAERS Safety Report 21260440 (Version 2)
Quarter: 2022Q4

REPORT INFORMATION
  Report Type: Spontaneous
  Country: ES (occurrence: ES)
  Receive Date: 20220826
  Receipt Date: 20221013
  Transmission Date: 20230112
  Serious: Yes (Death)
  Sender: FDA-Public Use
  Company Number: None

PATIENT
  Age: 90 Year
  Sex: Female

DRUGS (6)
  1. QUETIAPINE [Interacting]
     Active Substance: QUETIAPINE
     Indication: Dementia
     Dosage: QUETIAPIN (1136A), UNIT DOSE :  25 MG, DURATION :  5 MONTHS, FREQUENCY TIME : 1 DAY
     Route: 065
     Dates: start: 202202, end: 20220718
  2. RIVAROXABAN [Interacting]
     Active Substance: RIVAROXABAN
     Indication: Atrial fibrillation
     Dosage: RIVAROXABAN (8281A), UNIT DOSE :  15 MG, FREQUENCY TIME : 1 DAY ,  DURATION :  4 YEARS
     Route: 065
     Dates: start: 201712, end: 20220718
  3. METFORMIN HYDROCHLORIDE [Concomitant]
     Active Substance: METFORMIN HYDROCHLORIDE
     Indication: Diabetes mellitus
     Dosage: METFORMINA (1359A), UNIT DOSE :  850 MG, FREQUENCY TIME : 1 DAY ,  DURATION :  4 YEARS
     Dates: start: 201801, end: 20220718
  4. OMEPRAZOLE [Concomitant]
     Active Substance: OMEPRAZOLE
     Indication: Gastrointestinal disorder prophylaxis
     Dosage: OMEPRAZOL (2141A) , UNIT DOSE :  20MG, FREQUENCY TIME : 1 DAY ,   DURATION : 11 YEARS
     Dates: start: 201009, end: 20220718
  5. LEVOTHYROXINE SODIUM [Concomitant]
     Active Substance: LEVOTHYROXINE SODIUM
     Indication: Hypothyroidism
     Dosage: UNIT DOSE AND STRENGTH :125 MCG,  FREQUENCY TIME : 1 DAY, DURATION :  16 YEARS
     Dates: start: 200601, end: 20220718
  6. BISOPROLOL [Concomitant]
     Active Substance: BISOPROLOL
     Indication: Atrial fibrillation
     Dosage: BISOPROLOL (2328A) , UNIT DOSE :  2.5 MG, FREQUENCY TIME : 1 DAY , DURATION :  10 YEARS
     Dates: start: 201205, end: 20220718

REACTIONS (2)
  - Upper gastrointestinal haemorrhage [Fatal]
  - Drug interaction [Unknown]

NARRATIVE: CASE EVENT DATE: 20220718
